FAERS Safety Report 8880284 (Version 2)
Quarter: 2013Q1

REPORT INFORMATION
  Report Type: Report from Study
  Country: IT (occurrence: IT)
  Receive Date: 20121101
  Receipt Date: 20130321
  Transmission Date: 20140127
  Serious: Yes (Hospitalization)
  Sender: FDA-Public Use
  Company Number: PHHY2012IT098597

PATIENT
  Age: 77 Year
  Sex: Male

DRUGS (4)
  1. CERTICAN [Suspect]
     Indication: PROPHYLAXIS AGAINST TRANSPLANT REJECTION
     Dosage: 0.5 MG, BID
     Route: 048
     Dates: start: 20120515, end: 20121228
  2. SANDIMMUN NEORAL [Concomitant]
     Indication: PROPHYLAXIS AGAINST TRANSPLANT REJECTION
     Dosage: 75+ 50 MG
     Route: 048
     Dates: start: 20120110, end: 20121025
  3. DELTACORTENE [Concomitant]
     Indication: PROPHYLAXIS AGAINST TRANSPLANT REJECTION
     Dosage: 5 MG, UNK
     Route: 048
     Dates: start: 20030703, end: 20121025
  4. PRASTEROL [Concomitant]
     Dosage: 40 MG, UNK
     Route: 048
     Dates: start: 20111017, end: 20121025

REACTIONS (6)
  - Pulmonary embolism [Recovering/Resolving]
  - Pulmonary microemboli [Recovering/Resolving]
  - Pulmonary arterial pressure increased [Recovered/Resolved]
  - Leukocytosis [Recovered/Resolved]
  - Deep vein thrombosis [Recovering/Resolving]
  - Pneumonitis [Unknown]
